FAERS Safety Report 9562673 (Version 3)
Quarter: 2014Q1

REPORT INFORMATION
  Report Type: Spontaneous
  Country: US (occurrence: US)
  Receive Date: 20130927
  Receipt Date: 20140121
  Transmission Date: 20141002
  Serious: No
  Sender: FDA-Public Use
  Company Number: US-PFIZER INC-2013276493

PATIENT
  Age: 64 Year
  Sex: Female

DRUGS (7)
  1. XELJANZ [Suspect]
     Indication: RHEUMATOID ARTHRITIS
     Dosage: 5 MG, 2X/DAY
     Dates: start: 20130725, end: 2013
  2. XELJANZ [Suspect]
     Dosage: 5 MG, DAILY
     Dates: start: 2013, end: 2013
  3. XELJANZ [Suspect]
     Dosage: 5 MG, QD-BID
     Route: 048
     Dates: start: 20130822
  4. RECLAST [Concomitant]
     Indication: OSTEOPOROSIS
     Dosage: 5MG/10ML, Q YEAR
     Route: 042
     Dates: start: 20110405
  5. RECLAST [Concomitant]
     Indication: OSTEOPENIA
  6. IBUPROFEN [Concomitant]
     Indication: RHEUMATOID ARTHRITIS
     Dosage: 800 MG, 1X/DAY, PRN
     Route: 048
     Dates: start: 20101123
  7. ASPIRIN [Concomitant]
     Indication: CEREBROVASCULAR ACCIDENT PROPHYLAXIS
     Dosage: 81 MG, 1X/DAY
     Route: 048
     Dates: start: 20101123

REACTIONS (6)
  - Dizziness [Unknown]
  - Oral herpes [Recovered/Resolved]
  - Abdominal pain upper [Unknown]
  - Seasonal allergy [Unknown]
  - Blister [Unknown]
  - Pyrexia [Unknown]
